FAERS Safety Report 4520967-0 (Version None)
Quarter: 2004Q4

REPORT INFORMATION
  Report Type: 
  Country: None (occurrence: None)
  Receive Date: 20041206
  Receipt Date: 20041129
  Transmission Date: 20050328
  Serious: Yes (Hospitalization)
  Sender: FDA-Public Use
  Company Number: 2004-11-1511

PATIENT
  Age: 49 Year
  Sex: Female

DRUGS (6)
  1. INTRON A [Suspect]
     Indication: CHRONIC MYELOID LEUKAEMIA
     Dosage: 9 MIU QWK* SUBCUTANEOUS
     Route: 058
     Dates: start: 19960101, end: 20020201
  2. INTRON A [Suspect]
     Indication: CHRONIC MYELOID LEUKAEMIA
     Dosage: 9 MIU QWK* SUBCUTANEOUS
     Route: 058
     Dates: start: 20020501
  3. GLEEVEC [Suspect]
     Indication: CHRONIC MYELOID LEUKAEMIA
     Dosage: 4 QD* ORAL
     Route: 048
     Dates: start: 20010111, end: 20020101
  4. GLEEVEC [Suspect]
     Indication: CHRONIC MYELOID LEUKAEMIA
     Dosage: 4 QD* ORAL
     Route: 048
     Dates: start: 20020501
  5. ARACYTINE [Concomitant]
  6. ALKERAN [Concomitant]

REACTIONS (1)
  - COLITIS ULCERATIVE [None]
